FAERS Safety Report 8459958-6 (Version None)
Quarter: 2012Q2

REPORT INFORMATION
  Report Type: 
  Country: None (occurrence: None)
  Receive Date: 20120622
  Receipt Date: 20120619
  Transmission Date: 20120825
  Serious: Yes (Other)
  Sender: FDA-Public Use
  Company Number: PHEH2012US012330

PATIENT
  Sex: Female
  Weight: 61.224 kg

DRUGS (10)
  1. TRAMADOL HCL [Concomitant]
     Dosage: 50 MG, UNK
     Route: 048
  2. CRANBERRY [Concomitant]
     Route: 048
  3. PRILOSEC [Concomitant]
     Dosage: 20 MG, UNK
     Route: 048
  4. GILENYA [Suspect]
     Dosage: 0.5 MG, QD
     Route: 048
  5. CLONAZEPAM [Concomitant]
     Dosage: 0.5 MG, UNK
     Route: 048
  6. MULTI-TABS [Concomitant]
     Route: 048
  7. VALTREX [Concomitant]
     Dosage: 500 MG, UNK
     Route: 048
  8. LIDODERM [Concomitant]
  9. OMEGA [Concomitant]
     Route: 048
  10. AVONEX [Concomitant]
     Dosage: 30 UG, UNK
     Route: 030

REACTIONS (1)
  - DECREASED IMMUNE RESPONSIVENESS [None]
